FAERS Safety Report 4686775-5 (Version None)
Quarter: 2005Q2

REPORT INFORMATION
  Report Type: 
  Country: None (occurrence: None)
  Receive Date: 20050608
  Receipt Date: 20050523
  Transmission Date: 20051028
  Serious: Yes (Other)
  Sender: FDA-Public Use
  Company Number: DSK-2005-04953

PATIENT
  Sex: Female

DRUGS (5)
  1. EVOXAC [Suspect]
     Indication: SJOGREN'S SYNDROME
     Dosage: 90 MG (30 MG, 3 IN 1 D) PER ORAL
     Route: 048
     Dates: start: 20040219, end: 20040308
  2. PREDNISOLONE [Concomitant]
  3. NIZATIDINE [Concomitant]
  4. HALCION [Concomitant]
  5. DETANTOL (BUNAZOSIN HYDROCHLORIDE) [Concomitant]

REACTIONS (3)
  - ABORTION MISSED [None]
  - CHROMOSOME ABNORMALITY [None]
  - DRUG EXPOSURE DURING PREGNANCY [None]
